FAERS Safety Report 8922320 (Version 1)
Quarter: 2012Q4

REPORT INFORMATION
  Report Type: 
  Country: CO (occurrence: CO)
  Receive Date: 20121123
  Receipt Date: 20121123
  Transmission Date: 20130627
  Serious: Yes (Hospitalization)
  Sender: FDA-Public Use
  Company Number: CO-AMGEN-COLSP2012043161

PATIENT
  Age: 59 Year
  Sex: Female

DRUGS (15)
  1. ENBREL [Suspect]
     Indication: RHEUMATOID ARTHRITIS
     Dosage: 50 mg, weekly
     Route: 058
     Dates: start: 201205, end: 201207
  2. ENBREL [Suspect]
     Dosage: UNK
  3. ENBREL [Suspect]
     Dosage: UNK
  4. ENBREL [Suspect]
     Dosage: UNK
  5. FOLIC ACID [Concomitant]
     Dosage: 1 mg, 1x/day
     Route: 048
     Dates: start: 2009
  6. CHLOROQUINE [Concomitant]
     Dosage: 1 tablet per day from Monday to Friday
     Route: 048
  7. METHOTREXATE [Concomitant]
     Dosage: UNK UNK, qd
  8. VITAMIN C                          /00008001/ [Concomitant]
     Dosage: 1 tablet per day orally
     Route: 048
  9. OMEPRAZOLE [Concomitant]
     Indication: GASTRITIS
     Dosage: UNK UNK, qd
     Route: 048
     Dates: start: 2009
  10. PREDNISOLONE [Concomitant]
     Indication: RHEUMATOID ARTHRITIS
     Dosage: 1/2 tablet of 5 mg per day orally
     Route: 048
  11. PREDNISOLONE [Concomitant]
     Dosage: 1/2 tablet of 5 mg per day orally
     Route: 048
     Dates: start: 2003
  12. ACETAMINOPHEN [Concomitant]
     Dosage: as necessary, UNK
  13. DICLOFENAC [Concomitant]
     Dosage: UNK
  14. ENALAPRIL [Concomitant]
     Dosage: 2 tablet of 20 mg per day orally
     Route: 048
  15. CALCITRIOL [Concomitant]
     Indication: OSTEOPOROSIS
     Dosage: UNK
     Route: 048
     Dates: start: 201201

REACTIONS (12)
  - Oedema peripheral [Recovered/Resolved]
  - Dry skin [Not Recovered/Not Resolved]
  - Haematoma [Not Recovered/Not Resolved]
  - Inflammation [Not Recovered/Not Resolved]
  - Arthralgia [Not Recovered/Not Resolved]
  - Wheelchair user [Not Recovered/Not Resolved]
  - Pruritus generalised [Not Recovered/Not Resolved]
  - Hypersensitivity [Recovered/Resolved]
  - Urticaria [Recovered/Resolved]
  - Immune system disorder [Recovered/Resolved]
  - Drug ineffective [Unknown]
  - Haemoglobin decreased [Recovered/Resolved]
